FAERS Safety Report 18098928 (Version 2)
Quarter: 2021Q1

REPORT INFORMATION
  Report Type: Spontaneous
  Country: CA (occurrence: CA)
  Receive Date: 20200731
  Receipt Date: 20210203
  Transmission Date: 20210419
  Serious: Yes (Hospitalization, Other)
  Sender: FDA-Public Use
  Company Number: CA-AMGEN-CANSP2020122317

PATIENT
  Age: 95 Year
  Sex: Female

DRUGS (3)
  1. CALCIUM [Concomitant]
     Active Substance: CALCIUM
  2. PROLIA [Suspect]
     Active Substance: DENOSUMAB
     Indication: OSTEOPOROSIS POSTMENOPAUSAL
     Dosage: UNK
     Route: 065
     Dates: start: 2017
  3. VIT D [COLECALCIFEROL] [Concomitant]

REACTIONS (4)
  - Ligament sprain [Unknown]
  - Fall [Unknown]
  - Syncope [Unknown]
  - Foot fracture [Unknown]

NARRATIVE: CASE EVENT DATE: 202007
